FAERS Safety Report 15451062 (Version 2)
Quarter: 2018Q4

REPORT INFORMATION
  Report Type: Spontaneous
  Country: BR (occurrence: BR)
  Receive Date: 20181001
  Receipt Date: 20181001
  Transmission Date: 20190204
  Serious: Yes (Death, Other)
  Sender: FDA-Public Use
  Company Number: PHHY2018BR108251

PATIENT
  Age: 52 Year
  Sex: Male

DRUGS (6)
  1. CICLOSPORIN [Suspect]
     Active Substance: CYCLOSPORINE
     Indication: IMMUNOSUPPRESSANT DRUG THERAPY
  2. PREDNISONE. [Suspect]
     Active Substance: PREDNISONE
     Indication: RENAL TRANSPLANT
     Dosage: UNK
     Route: 065
  3. AZATHIOPRINE. [Suspect]
     Active Substance: AZATHIOPRINE
     Indication: RENAL TRANSPLANT
     Dosage: UNK
     Route: 065
  4. AZATHIOPRINE. [Suspect]
     Active Substance: AZATHIOPRINE
     Indication: IMMUNOSUPPRESSANT DRUG THERAPY
  5. CICLOSPORIN [Suspect]
     Active Substance: CYCLOSPORINE
     Indication: RENAL TRANSPLANT
     Dosage: UNK
     Route: 065
  6. PREDNISONE. [Suspect]
     Active Substance: PREDNISONE
     Indication: IMMUNOSUPPRESSANT DRUG THERAPY

REACTIONS (17)
  - Dysarthria [Unknown]
  - Fusarium infection [Unknown]
  - Bacterial pyelonephritis [Unknown]
  - Weight decreased [Unknown]
  - Pneumonia bacterial [Fatal]
  - Dizziness [Unknown]
  - Anal ulcer [Unknown]
  - HIV infection [Recovering/Resolving]
  - Cough [Unknown]
  - Skin mass [Unknown]
  - Herpes zoster [Unknown]
  - Meningoencephalitis herpetic [Unknown]
  - Confusional state [Unknown]
  - Splenomegaly [Unknown]
  - Lymphadenopathy [Unknown]
  - Cytomegalovirus gastroenteritis [Unknown]
  - Oral candidiasis [Unknown]
